FAERS Safety Report 4672995-2 (Version None)
Quarter: 2005Q2

REPORT INFORMATION
  Report Type: 
  Country: None (occurrence: None)
  Receive Date: 20050523
  Receipt Date: 20050509
  Transmission Date: 20051028
  Serious: Yes (Other)
  Sender: FDA-Public Use
  Company Number: 2004238360TH

PATIENT
  Age: 44 Year
  Sex: Female

DRUGS (3)
  1. BEXTRA [Suspect]
     Indication: OSTEOARTHRITIS
     Dosage: ORAL
     Route: 048
     Dates: start: 20040901, end: 20040930
  2. PARAFON FORTE (CHLORZOXAZONE, PARACETAMOL) [Concomitant]
  3. MEFENAMIC ACID [Concomitant]

REACTIONS (10)
  - ALOPECIA [None]
  - CHILLS [None]
  - DRUG HYPERSENSITIVITY [None]
  - DRY SKIN [None]
  - MYALGIA [None]
  - PRURITUS [None]
  - SKIN HYPERPIGMENTATION [None]
  - SKIN OEDEMA [None]
  - SKIN TIGHTNESS [None]
  - STEVENS-JOHNSON SYNDROME [None]
